FAERS Safety Report 10357171 (Version 2)
Quarter: 2014Q3

REPORT INFORMATION
  Report Type: Report from Study
  Country: GR (occurrence: GR)
  Receive Date: 20140801
  Receipt Date: 20140801
  Transmission Date: 20150326
  Serious: Yes (Other)
  Sender: FDA-Public Use
  Company Number: GR-ROCHE-1201550

PATIENT

DRUGS (8)
  1. TRASTUZUMAB [Suspect]
     Active Substance: TRASTUZUMAB
     Indication: BREAST CANCER
     Route: 065
  2. CYCLOPHOSPHAMIDE. [Suspect]
     Active Substance: CYCLOPHOSPHAMIDE
     Indication: BREAST CANCER
     Route: 065
  3. PACLITAXEL. [Suspect]
     Active Substance: PACLITAXEL
     Indication: BREAST CANCER
     Route: 065
  4. FLUOROURACIL. [Suspect]
     Active Substance: FLUOROURACIL
     Indication: BREAST CANCER
     Route: 065
  5. DOCETAXEL [Suspect]
     Active Substance: DOCETAXEL
     Indication: BREAST CANCER
     Route: 065
  6. METHOTREXATE [Suspect]
     Active Substance: METHOTREXATE
     Indication: BREAST CANCER
     Route: 065
  7. EPIRUBICIN [Suspect]
     Active Substance: EPIRUBICIN
     Indication: BREAST CANCER
     Route: 065
  8. PACLITAXEL. [Suspect]
     Active Substance: PACLITAXEL
     Route: 065

REACTIONS (23)
  - Vomiting [Unknown]
  - Skin reaction [Unknown]
  - Nervous system disorder [Unknown]
  - Cardiac disorder [Unknown]
  - Infection [Unknown]
  - Hypersensitivity [Unknown]
  - Angiopathy [Unknown]
  - Eye disorder [Unknown]
  - Fatigue [Unknown]
  - Decreased appetite [Unknown]
  - Febrile neutropenia [Unknown]
  - Neutrophil count abnormal [Unknown]
  - Lung disorder [Unknown]
  - Pain [Unknown]
  - Platelet count abnormal [Unknown]
  - Gastrointestinal disorder [Unknown]
  - Diarrhoea [Unknown]
  - Nausea [Unknown]
  - Haemoglobin abnormal [Unknown]
  - White blood cell disorder [Unknown]
  - Lymphopenia [Unknown]
  - Mucosal inflammation [Unknown]
  - Oedema [Unknown]
